FAERS Safety Report 14726697 (Version 1)
Quarter: 2018Q2

REPORT INFORMATION
  Report Type: Spontaneous
  Country: US (occurrence: US)
  Receive Date: 20180406
  Receipt Date: 20180406
  Transmission Date: 20180711
  Serious: No
  Sender: FDA-Public Use
  Company Number: US-BAYER-2018-054570

PATIENT
  Sex: Female

DRUGS (1)
  1. CLARITIN [Suspect]
     Active Substance: LORATADINE
     Dosage: LESS THAN 2 TEASPOONS
     Route: 065
     Dates: start: 20180316

REACTIONS (2)
  - Product use issue [Unknown]
  - Circumstance or information capable of leading to medication error [None]
